FAERS Safety Report 22048520 (Version 2)
Quarter: 2023Q1

REPORT INFORMATION
  Report Type: Report from Study
  Country: CA (occurrence: CA)
  Receive Date: 20230301
  Receipt Date: 20230328
  Transmission Date: 20230417
  Serious: Yes (Other)
  Sender: FDA-Public Use
  Company Number: CA-GLAXOSMITHKLINE-CA2023AMR011585

PATIENT

DRUGS (3)
  1. MEPOLIZUMAB [Suspect]
     Active Substance: MEPOLIZUMAB
     Indication: Asthma
     Dosage: 100 MG, Z EVERY 4 WEEKS
     Route: 058
     Dates: start: 20211101
  2. MEPOLIZUMAB [Suspect]
     Active Substance: MEPOLIZUMAB
     Indication: Asthma
     Dosage: 100 MG, Z (EVERY 4 WEEKS)
     Route: 058
  3. THEO-ER [Concomitant]
     Indication: Product used for unknown indication
     Dosage: 400 MG, WE
     Route: 042

REACTIONS (6)
  - Asthmatic crisis [Unknown]
  - Contusion [Unknown]
  - Joint injury [Unknown]
  - Arthralgia [Not Recovered/Not Resolved]
  - Ocular discomfort [Not Recovered/Not Resolved]
  - Heart rate increased [Unknown]

NARRATIVE: CASE EVENT DATE: 20230101
